FAERS Safety Report 4555063-X (Version None)
Quarter: 2004Q4

REPORT INFORMATION
  Report Type: 
  Country: None (occurrence: None)
  Receive Date: 20041217
  Receipt Date: 20040804
  Transmission Date: 20050328
  Serious: No
  Sender: FDA-Public Use
  Company Number: 2004-BP-05288BP

PATIENT
  Age: 66 Year
  Sex: Male
  Weight: 65.8 kg

DRUGS (7)
  1. SPIRIVA HANDIHANDLER (TIOTROPIUM BROMIDE) [Suspect]
     Indication: CHRONIC OBSTRUCTIVE AIRWAYS DISEASE
     Dosage: 18 MCG (18 MCG), IH
     Route: 055
     Dates: start: 20040629, end: 20040630
  2. SYNTHROID [Concomitant]
  3. FLOVENT [Concomitant]
  4. MAXAIR [Concomitant]
  5. SEREVENT DISKUS (SALMETEROL XINAFOATE) [Concomitant]
  6. PULMICORT [Concomitant]
  7. ALBUTEROL NEBULIZER SOLUTION (SALBUTAMOL) [Concomitant]

REACTIONS (1)
  - DIARRHOEA [None]
